FAERS Safety Report 17764012 (Version 2)
Quarter: 2020Q2

REPORT INFORMATION
  Report Type: Report from Study
  Country: US (occurrence: US)
  Receive Date: 20200510
  Receipt Date: 20200527
  Transmission Date: 20200714
  Serious: Yes (Other)
  Sender: FDA-Public Use
  Company Number: US-AMGEN-USASL2020072812

PATIENT
  Sex: Female

DRUGS (1)
  1. PROLIA [Suspect]
     Active Substance: DENOSUMAB
     Indication: PRODUCT USED FOR UNKNOWN INDICATION
     Dosage: UNK
     Route: 065

REACTIONS (5)
  - Musculoskeletal disorder [Unknown]
  - Retinal oedema [Recovering/Resolving]
  - Gastric disorder [Unknown]
  - Ear pain [Unknown]
  - Headache [Unknown]

NARRATIVE: CASE EVENT DATE: 202003
